FAERS Safety Report 25766774 (Version 2)
Quarter: 2025Q4

REPORT INFORMATION
  Report Type: Report from Study
  Country: US (occurrence: US)
  Receive Date: 20250905
  Receipt Date: 20251210
  Transmission Date: 20260117
  Serious: Yes (Hospitalization)
  Sender: MERCK SHARP & DOHME LLC
  Company Number: US-009507513-2281658

PATIENT
  Sex: Female
  Weight: 53.977 kg

DRUGS (15)
  1. WINREVAIR [Suspect]
     Active Substance: SOTATERCEPT-CSRK
     Indication: Pulmonary arterial hypertension
     Route: 058
     Dates: start: 202504
  2. WINREVAIR [Suspect]
     Active Substance: SOTATERCEPT-CSRK
  3. WINREVAIR [Suspect]
     Active Substance: SOTATERCEPT-CSRK
  4. WINREVAIR [Suspect]
     Active Substance: SOTATERCEPT-CSRK
  5. WINREVAIR [Suspect]
     Active Substance: SOTATERCEPT-CSRK
  6. WINREVAIR [Suspect]
     Active Substance: SOTATERCEPT-CSRK
  7. WINREVAIR [Suspect]
     Active Substance: SOTATERCEPT-CSRK
  8. WINREVAIR [Suspect]
     Active Substance: SOTATERCEPT-CSRK
  9. WINREVAIR [Suspect]
     Active Substance: SOTATERCEPT-CSRK
  10. WINREVAIR [Suspect]
     Active Substance: SOTATERCEPT-CSRK
  11. WINREVAIR [Suspect]
     Active Substance: SOTATERCEPT-CSRK
  12. WINREVAIR [Suspect]
     Active Substance: SOTATERCEPT-CSRK
  13. REMODULIN [Suspect]
     Active Substance: TREPROSTINIL
     Route: 058
     Dates: start: 202308
  14. AMBRISENTAN [Concomitant]
     Active Substance: AMBRISENTAN
  15. ADEMPAS [Concomitant]
     Active Substance: RIOCIGUAT

REACTIONS (8)
  - Haemorrhage [Unknown]
  - Arthralgia [Unknown]
  - Breath sounds abnormal [Unknown]
  - Fibromyalgia [Unknown]
  - Pain [Unknown]
  - Dyspnoea exertional [Unknown]
  - Medical device site pain [Recovering/Resolving]
  - Medical device site erythema [Recovering/Resolving]

NARRATIVE: CASE EVENT DATE: 20250101
